FAERS Safety Report 25845155 (Version 1)
Quarter: 2025Q3

REPORT INFORMATION
  Report Type: Report from Study
  Country: US (occurrence: US)
  Receive Date: 20250925
  Receipt Date: 20250925
  Transmission Date: 20251021
  Serious: Yes (Other)
  Sender: ABBVIE
  Company Number: US-ABBVIE-6469818

PATIENT
  Sex: Male

DRUGS (1)
  1. HUMIRA [Suspect]
     Active Substance: ADALIMUMAB
     Indication: Crohn^s disease
     Route: 058

REACTIONS (7)
  - Meniscopathy [Unknown]
  - Drug ineffective [Unknown]
  - Weight increased [Unknown]
  - Weight decreased [Unknown]
  - Device issue [Unknown]
  - Diabetes mellitus [Unknown]
  - Rotator cuff syndrome [Unknown]
